FAERS Safety Report 8793569 (Version 1)
Quarter: 2012Q4

REPORT INFORMATION
  Report Type: 
  Country: GB (occurrence: GB)
  Receive Date: 20120918
  Receipt Date: 20120918
  Transmission Date: 20130627
  Serious: Yes (Hospitalization)
  Sender: FDA-Public Use
  Company Number: PHFR2012GB004985

PATIENT
  Sex: Male

DRUGS (4)
  1. CLOZARIL [Suspect]
     Indication: SCHIZOPHRENIA
     Dosage: 300 mg, UNK
     Route: 048
     Dates: start: 20010701
  2. VALPROATE [Concomitant]
  3. DIAZEPAM [Concomitant]
  4. LITHIUM [Concomitant]

REACTIONS (5)
  - Bruxism [Unknown]
  - Psychiatric symptom [Unknown]
  - Antipsychotic drug level increased [Unknown]
  - Tremor [Unknown]
  - Fatigue [Unknown]
